FAERS Safety Report 23344370 (Version 3)
Quarter: 2024Q1

REPORT INFORMATION
  Report Type: Report from Study
  Country: US (occurrence: US)
  Receive Date: 20231228
  Receipt Date: 20240220
  Transmission Date: 20240410
  Serious: Yes (Other)
  Sender: FDA-Public Use
  Company Number: US-ABBVIE-5561960

PATIENT
  Age: 65 Year
  Sex: Male

DRUGS (1)
  1. RINVOQ [Suspect]
     Active Substance: UPADACITINIB
     Indication: Rheumatoid arthritis
     Route: 048
     Dates: end: 2023

REACTIONS (4)
  - Endoscopic subureteral transurethral injection [Unknown]
  - Herpes zoster [Unknown]
  - Hyperaesthesia [Unknown]
  - Catheter placement [Unknown]

NARRATIVE: CASE EVENT DATE: 20231218
